FAERS Safety Report 9063949 (Version 1)
Quarter: 2013Q1

REPORT INFORMATION
  Report Type: Spontaneous
  Country: US (occurrence: US)
  Receive Date: 20130213
  Receipt Date: 20130213
  Transmission Date: 20140127
  Serious: Yes (Other)
  Sender: FDA-Public Use
  Company Number: US-ROCHE-1189172

PATIENT
  Sex: Female

DRUGS (1)
  1. BONIVA [Suspect]
     Indication: OSTEOPOROSIS
     Route: 065

REACTIONS (6)
  - Fall [Unknown]
  - Upper limb fracture [Not Recovered/Not Resolved]
  - Jaw fracture [Unknown]
  - Periodontitis [Unknown]
  - Periarthritis [Unknown]
  - Pain in extremity [Unknown]
